FAERS Safety Report 6676324-4 (Version None)
Quarter: 2010Q1

REPORT INFORMATION
  Report Type: 
  Country: None (occurrence: None)
  Receive Date: 20100331
  Receipt Date: 20090426
  Transmission Date: 20100710
  Serious: Yes (Death)
  Sender: FDA-Public Use
  Company Number: 2009183841

PATIENT

DRUGS (1)
  1. SUTENT [Suspect]

REACTIONS (1)
  - HAEMORRHAGE [None]
